FAERS Safety Report 4905360-0 (Version None)
Quarter: 2006Q1

REPORT INFORMATION
  Report Type: 
  Country: None (occurrence: None)
  Receive Date: 20060208
  Receipt Date: 20060131
  Transmission Date: 20060701
  Serious: Yes (Hospitalization)
  Sender: FDA-Public Use
  Company Number: GR-AVENTIS-200610989GDDC

PATIENT
  Age: 80 Year
  Sex: Female

DRUGS (2)
  1. TELITHROMYCIN [Suspect]
     Indication: RESPIRATORY TRACT INFECTION
     Dosage: DOSE: UNK
     Route: 048
     Dates: start: 20051101, end: 20051201
  2. CARDIOVASCULAR SYSTEM DRUGS [Concomitant]
     Dosage: DOSE: UNK

REACTIONS (4)
  - APLASTIC ANAEMIA [None]
  - BLOOD CREATININE INCREASED [None]
  - RENAL DISORDER [None]
  - RENAL FAILURE [None]
